FAERS Safety Report 7399853-7 (Version None)
Quarter: 2011Q1

REPORT INFORMATION
  Report Type: 
  Country: None (occurrence: None)
  Receive Date: 20110329
  Receipt Date: 20110316
  Transmission Date: 20110831
  Serious: Yes (Death, Other)
  Sender: FDA-Public Use
  Company Number: 011319

PATIENT
  Age: 55 Year
  Sex: Male

DRUGS (3)
  1. CYCLOPHOSPHAMIDE [Concomitant]
  2. BUSULFEX [Suspect]
     Indication: BONE MARROW TRANSPLANT
     Dosage: INTRAVENOUS
     Route: 042
  3. BUSULFEX [Suspect]
     Indication: STEM CELL TRANSPLANT
     Dosage: INTRAVENOUS
     Route: 042

REACTIONS (6)
  - ACUTE GRAFT VERSUS HOST DISEASE IN LIVER [None]
  - ACUTE GRAFT VERSUS HOST DISEASE IN INTESTINE [None]
  - ACUTE RESPIRATORY DISTRESS SYNDROME [None]
  - INFECTION [None]
  - ACUTE GRAFT VERSUS HOST DISEASE IN SKIN [None]
  - MULTI-ORGAN FAILURE [None]
